FAERS Safety Report 8037489-5 (Version None)
Quarter: 2012Q1

REPORT INFORMATION
  Report Type: 
  Country: None (occurrence: None)
  Receive Date: 20120111
  Receipt Date: 20120110
  Transmission Date: 20120608
  Serious: Yes (Life-Threatening, Hospitalization, Other)
  Sender: FDA-Public Use
  Company Number: JP-PFIZER INC-2011303652

PATIENT
  Age: 84 Year
  Sex: Male
  Weight: 68 kg

DRUGS (13)
  1. FAMOTIDINE [Concomitant]
     Dosage: 10 MG, 1X/DAY
     Route: 048
  2. METHYCOBAL [Concomitant]
     Dosage: 500 UG, 3X/DAY
     Route: 048
  3. PLETAL [Concomitant]
     Indication: PERIPHERAL ARTERIAL OCCLUSIVE DISEASE
     Dosage: 100 MG, 2X/DAY
     Route: 048
     Dates: start: 20091214, end: 20111212
  4. HUMALOG [Concomitant]
     Dosage: 6 DF, 1X/DAY
     Route: 058
  5. SODIUM BICARBONATE [Concomitant]
     Dosage: 3 G, 1X/DAY
     Route: 048
  6. OLMESARTAN MEDOXOMIL [Concomitant]
     Dosage: 10 MG, 1X/DAY
     Route: 048
  7. NORVASC [Concomitant]
     Dosage: 2.5 MG, 1X/DAY
     Route: 048
  8. ASPIRIN [Concomitant]
     Dosage: 100 MG, 1X/DAY
     Route: 048
  9. LYRICA [Suspect]
     Indication: PAIN IN EXTREMITY
     Dosage: 25 MG, 1X/DAY
     Route: 048
     Dates: start: 20110912, end: 20111212
  10. KINEDAK [Concomitant]
     Dosage: 50 MG, 3X/DAY
     Route: 048
  11. CRESTOR [Concomitant]
     Dosage: 2.5 MG, 1X/DAY
     Route: 048
  12. ALLOPURINOL [Concomitant]
     Dosage: 50 MG, 1X/DAY
     Route: 048
  13. ZOLPIDEM [Concomitant]
     Dosage: 5 MG, 1X/DAY
     Route: 048

REACTIONS (1)
  - INTERSTITIAL LUNG DISEASE [None]
